FAERS Safety Report 9823200 (Version 3)
Quarter: 2014Q1

REPORT INFORMATION
  Report Type: Spontaneous
  Country: JP (occurrence: JP)
  Receive Date: 20140116
  Receipt Date: 20140220
  Transmission Date: 20141002
  Serious: Yes (Hospitalization, Other)
  Sender: FDA-Public Use
  Company Number: JP-ABBVIE-14P-087-1188878-00

PATIENT
  Age: 41 Year
  Sex: Female
  Weight: 47 kg

DRUGS (3)
  1. LEUPLIN FOR INJECTION KIT 1.88 [Suspect]
     Indication: UTERINE LEIOMYOMA
     Dosage: KIT 1.88
     Route: 058
     Dates: start: 20131030, end: 20131210
  2. LEUPLIN FOR INJECTION KIT 1.88 [Suspect]
     Indication: MENORRHAGIA
  3. LOXOPROFEN SODIUM [Concomitant]
     Indication: PRODUCT USED FOR UNKNOWN INDICATION
     Dates: start: 2001, end: 20131030

REACTIONS (3)
  - Immune thrombocytopenic purpura [Recovered/Resolved]
  - Condition aggravated [Recovered/Resolved]
  - Subarachnoid haemorrhage [Recovered/Resolved]
